FAERS Safety Report 5284819-3 (Version None)
Quarter: 2007Q1

REPORT INFORMATION
  Report Type: 
  Country: None (occurrence: None)
  Receive Date: 20061229
  Receipt Date: 20060424
  Transmission Date: 20070707
  Serious: Yes (Hospitalization)
  Sender: FDA-Public Use
  Company Number: PHEH2006US05393

PATIENT
  Age: 10 Year
  Sex: Male

DRUGS (1)
  1. CLOZARIL [Suspect]
     Indication: BIPOLAR DISORDER
     Dosage: 400 MG, QD, ORAL
     Route: 048

REACTIONS (3)
  - BIPOLAR DISORDER [None]
  - DISEASE PROGRESSION [None]
  - SINUSITIS [None]
